FAERS Safety Report 16306630 (Version 1)
Quarter: 2019Q2

REPORT INFORMATION
  Report Type: Spontaneous
  Country: US (occurrence: US)
  Receive Date: 20190513
  Receipt Date: 20190513
  Transmission Date: 20190711
  Serious: Yes (Hospitalization)
  Sender: FDA-Public Use
  Company Number: US-OSMOTICA_PHARMACEUTICAL_US_LLC-POI0573201900173

PATIENT
  Age: 77 Year
  Sex: Male
  Weight: 78.09 kg

DRUGS (8)
  1. OSMOLEX ER [Suspect]
     Active Substance: AMANTADINE
     Indication: PARKINSON^S DISEASE
     Dates: start: 20190403, end: 20190416
  2. CARBIDOPA LEVODOPA [Concomitant]
     Active Substance: CARBIDOPA\LEVODOPA
     Indication: PARKINSON^S DISEASE
  3. METOPROLOL. [Concomitant]
     Active Substance: METOPROLOL
     Indication: HYPERCHOLESTEROLAEMIA
  4. SPIRIVA RESPIMAT [Concomitant]
     Active Substance: TIOTROPIUM BROMIDE
     Indication: DYSPNOEA
  5. OSMOLEX ER [Suspect]
     Active Substance: AMANTADINE
     Dates: start: 20190501
  6. AMANTADINE. [Suspect]
     Active Substance: AMANTADINE HYDROCHLORIDE
     Indication: PARKINSON^S DISEASE
     Dates: start: 20190417, end: 20190430
  7. COLLAGEN [Concomitant]
     Active Substance: COLLAGEN
     Indication: VOCAL CORD DYSFUNCTION
     Route: 059
     Dates: start: 20190430, end: 20190430
  8. AMLODIPINE [Concomitant]
     Active Substance: AMLODIPINE BESYLATE
     Indication: HYPERTENSION

REACTIONS (4)
  - Dysarthria [Recovering/Resolving]
  - Pneumonia [Recovering/Resolving]
  - Dyspnoea [Recovered/Resolved]
  - Drug ineffective [Not Recovered/Not Resolved]

NARRATIVE: CASE EVENT DATE: 20190403
